FAERS Safety Report 19100390 (Version 2)
Quarter: 2021Q2

REPORT INFORMATION
  Report Type: Spontaneous
  Country: US (occurrence: US)
  Receive Date: 20210407
  Receipt Date: 20210622
  Transmission Date: 20210717
  Serious: Yes (Other)
  Sender: FDA-Public Use
  Company Number: US-JNJFOC-20210402863

PATIENT
  Age: 63 Year
  Sex: Male

DRUGS (5)
  1. CLARITIN [Concomitant]
     Active Substance: LORATADINE
     Dates: end: 20210527
  2. PREDNISONE. [Concomitant]
     Active Substance: PREDNISONE
     Dates: end: 20210527
  3. ZYTIGA [Suspect]
     Active Substance: ABIRATERONE ACETATE
     Indication: PRODUCT USED FOR UNKNOWN INDICATION
     Route: 048
     Dates: start: 201802
  4. GABAPENTIN. [Concomitant]
     Active Substance: GABAPENTIN
     Dates: end: 20210527
  5. CLINDAMYCIN. [Concomitant]
     Active Substance: CLINDAMYCIN
     Dates: end: 20210527

REACTIONS (3)
  - Peripheral swelling [Recovering/Resolving]
  - Spinal fracture [Not Recovered/Not Resolved]
  - Neuropathy peripheral [Not Recovered/Not Resolved]

NARRATIVE: CASE EVENT DATE: 20210224
